FAERS Safety Report 17052292 (Version 1)
Quarter: 2019Q4

REPORT INFORMATION
  Report Type: Spontaneous
  Country: US (occurrence: US)
  Receive Date: 20191119
  Receipt Date: 20191119
  Transmission Date: 20200122
  Serious: Yes (Disabling)
  Sender: FDA-Public Use
  Company Number: None

PATIENT
  Age: 43 Year
  Sex: Female
  Weight: 90 kg

DRUGS (1)
  1. NEOMYCIN-POLYMYXIN-HC EAR SUSP [Suspect]
     Active Substance: HYDROCORTISONE\NEOMYCIN SULFATE\POLYMYXIN B
     Indication: EAR INFECTION
     Dosage: ?          QUANTITY:4 DROP(S);?
     Route: 001
     Dates: start: 20191115, end: 20191118

REACTIONS (2)
  - Therapy cessation [None]
  - Deafness [None]

NARRATIVE: CASE EVENT DATE: 20191116
